FAERS Safety Report 4682882-1 (Version None)
Quarter: 2005Q2

REPORT INFORMATION
  Report Type: 
  Country: None (occurrence: None)
  Receive Date: 20050602
  Receipt Date: 20050121
  Transmission Date: 20051028
  Serious: No
  Sender: FDA-Public Use
  Company Number: US_0502112085

PATIENT
  Age: 41 Year
  Sex: Female

DRUGS (7)
  1. CYMBALTA [Suspect]
     Indication: MAJOR DEPRESSION
     Dosage: 60 MG
     Dates: start: 20050105, end: 20050115
  2. ANTIHYPERTENSIVE [Concomitant]
  3. PRAVACHOL [Concomitant]
  4. AVAPRO [Concomitant]
  5. CLARINEX [Concomitant]
  6. IBUPROFEN [Concomitant]
  7. RELPAX (ELETRIPTAN HYDROBROMIDE) [Concomitant]

REACTIONS (7)
  - CHEST PAIN [None]
  - CRYING [None]
  - DEPRESSION [None]
  - IRRITABILITY [None]
  - PALPITATIONS [None]
  - SOCIAL AVOIDANT BEHAVIOUR [None]
  - SUICIDAL IDEATION [None]
